FAERS Safety Report 8858900 (Version 1)
Quarter: 2012Q4

REPORT INFORMATION
  Report Type: Spontaneous
  Country: US (occurrence: None)
  Receive Date: 20121019
  Receipt Date: 20121019
  Transmission Date: 20130627
  Serious: Yes (Hospitalization)
  Sender: FDA-Public Use
  Company Number: VAL_00927_2012

PATIENT
  Age: 45 Year
  Sex: Female

DRUGS (6)
  1. METOPROLOL [Suspect]
     Indication: BLOOD PRESSURE ABNORMAL
     Dosage: (DF Intravenous (not otherwise specified)
  2. PHENYTOIN (UNKNOWN) [Concomitant]
  3. LORAZEPAM (UNKNOWN) [Concomitant]
  4. LISINOPRIL (UNKNOWN) [Concomitant]
  5. HYDROCHLOROTHIAZIDE (UNKNOWN [Concomitant]
  6. LEVETIRACETAM (UNKNOWN UNITL CONTINUING) [Concomitant]

REACTIONS (3)
  - Anterograde amnesia [None]
  - Leukoencephalopathy [None]
  - Blood pressure fluctuation [None]
